FAERS Safety Report 4959853-0 (Version None)
Quarter: 2006Q1

REPORT INFORMATION
  Report Type: 
  Country: None (occurrence: None)
  Receive Date: 20060331
  Receipt Date: 20050930
  Transmission Date: 20060701
  Serious: Yes (Hospitalization)
  Sender: FDA-Public Use
  Company Number: US-MERCK-0510USA00263

PATIENT
  Age: 69 Year
  Sex: Female
  Weight: 93 kg

DRUGS (1)
  1. VIOXX [Suspect]
     Indication: ARTHRITIS
     Route: 048
     Dates: start: 20040204, end: 20040927

REACTIONS (5)
  - ANXIETY [None]
  - CARDIAC DISORDER [None]
  - CEREBROVASCULAR ACCIDENT [None]
  - CEREBROVASCULAR DISORDER [None]
  - MIGRAINE [None]
